FAERS Safety Report 9714710 (Version 1)
Quarter: 2013Q4

REPORT INFORMATION
  Report Type: Spontaneous
  Country: US (occurrence: US)
  Receive Date: 20131126
  Receipt Date: 20131126
  Transmission Date: 20140711
  Serious: Yes (Disabling, Other)
  Sender: FDA-Public Use
  Company Number: US-ELI_LILLY_AND_COMPANY-US201311005568

PATIENT
  Sex: Female

DRUGS (3)
  1. HUMALOG LISPRO [Suspect]
     Indication: TYPE 1 DIABETES MELLITUS
     Route: 065
  2. HUMULIN NPH [Suspect]
     Indication: TYPE 1 DIABETES MELLITUS
     Dosage: UNK
     Route: 065
  3. LANTUS [Concomitant]
     Dosage: 17 U, QD

REACTIONS (3)
  - Eye haemorrhage [Unknown]
  - Blindness [Not Recovered/Not Resolved]
  - Diabetic retinopathy [Unknown]
